FAERS Safety Report 7163356-5 (Version None)
Quarter: 2010Q4

REPORT INFORMATION
  Report Type: 
  Country: None (occurrence: None)
  Receive Date: 20101215
  Receipt Date: 20100404
  Transmission Date: 20110411
  Serious: Yes (Other)
  Sender: FDA-Public Use
  Company Number: US-PFIZER INC-2010043073

PATIENT
  Sex: Male
  Weight: 87.075 kg

DRUGS (1)
  1. LYRICA [Suspect]
     Indication: NEURALGIA
     Dosage: 75 MG, 4X/DAY
     Route: 048
     Dates: start: 20100326

REACTIONS (4)
  - FEELING ABNORMAL [None]
  - FORMICATION [None]
  - JOINT SWELLING [None]
  - SOMNOLENCE [None]
